FAERS Safety Report 11690805 (Version 2)
Quarter: 2015Q4

REPORT INFORMATION
  Report Type: Report from Study
  Country: US (occurrence: US)
  Receive Date: 20151102
  Receipt Date: 20151116
  Transmission Date: 20160304
  Serious: Yes (Death, Hospitalization, Other)
  Sender: FDA-Public Use
  Company Number: US-JAZZ-2015-US-017985

PATIENT
  Age: 52 Year
  Sex: Female

DRUGS (1)
  1. CLOZAPINE, USP ODT [Suspect]
     Active Substance: CLOZAPINE
     Indication: SCHIZOPHRENIA
     Dosage: UNK MG, UNK

REACTIONS (2)
  - Neutropenia [Unknown]
  - Breast cancer metastatic [Fatal]

NARRATIVE: CASE EVENT DATE: 20070123
